FAERS Safety Report 5989364-5 (Version None)
Quarter: 2008Q4

REPORT INFORMATION
  Report Type: 
  Country: None (occurrence: None)
  Receive Date: 20081205
  Receipt Date: 20081118
  Transmission Date: 20090506
  Serious: Yes (Hospitalization)
  Sender: FDA-Public Use
  Company Number: DSA_02812_2008

PATIENT
  Age: 25 Year
  Sex: Female

DRUGS (1)
  1. VANIQA [Suspect]
     Indication: HAIR GROWTH ABNORMAL
     Dosage: (/ TOPICAL)
     Route: 061
     Dates: start: 20070101

REACTIONS (4)
  - AMNIOCENTESIS ABNORMAL [None]
  - CAESAREAN SECTION [None]
  - DRUG EXPOSURE DURING PREGNANCY [None]
  - PREGNANCY [None]
